FAERS Safety Report 8774165 (Version 4)
Quarter: 2013Q1

REPORT INFORMATION
  Report Type: Report from Study
  Country: JP (occurrence: JP)
  Receive Date: 20120912
  Receipt Date: 20130228
  Transmission Date: 20140127
  Serious: Yes (Hospitalization, Other)
  Sender: FDA-Public Use
  Company Number: JP-VERTEX PHARMACEUTICAL INC.-AE-2012-004842

PATIENT
  Age: 65 Year
  Sex: Male

DRUGS (15)
  1. VX-950 (TELAPREVIR) [Suspect]
     Indication: CHRONIC HEPATITIS C
     Dosage: 2250 MG, QD
     Route: 048
     Dates: start: 20120124, end: 20120201
  2. VX-950 (TELAPREVIR) [Suspect]
     Dosage: 1000 MG, QD
     Route: 048
     Dates: start: 20120202, end: 20120202
  3. VX-950 (TELAPREVIR) [Suspect]
     Dosage: 1500 MG, QD
     Route: 048
     Dates: start: 20120203, end: 20120326
  4. VX-950 (TELAPREVIR) [Suspect]
     Dosage: 750 MG, QD
     Route: 048
     Dates: start: 20120327, end: 20120330
  5. REBETOL [Suspect]
     Indication: CHRONIC HEPATITIS C
     Dosage: 800 MG, QD
     Route: 048
     Dates: start: 20120124, end: 20120326
  6. REBETOL [Suspect]
     Dosage: 400 MG, QD
     Route: 048
     Dates: start: 20120327, end: 20120327
  7. REBETOL [Suspect]
     Dosage: 200 MG, QD
     Route: 048
     Dates: start: 20120328, end: 20120328
  8. REBETOL [Suspect]
     Dosage: 400 MG, QD
     Route: 048
     Dates: start: 20120410, end: 20120413
  9. PEGINTRON [Suspect]
     Indication: CHRONIC HEPATITIS C
     Dosage: 1.5 ?G/KG, QW
     Route: 058
     Dates: start: 20120124, end: 20120327
  10. PEGINTRON [Suspect]
     Dosage: 1.5 ?G/KG, QW
     Route: 058
     Dates: start: 20120410, end: 20120410
  11. PEGINTRON [Suspect]
     Dosage: UNK
  12. GASPORT [Concomitant]
     Dosage: 40 MG, QD
     Route: 048
     Dates: start: 20120202, end: 20120618
  13. LECICARBON [Concomitant]
     Dosage: 2 DF, QD
     Route: 054
     Dates: start: 20120404, end: 20120404
  14. BARACLUDE [Concomitant]
     Dosage: 0.5 MG, QD
     Route: 048
     Dates: start: 20120403, end: 20120604
  15. URSO [Concomitant]
     Dosage: 600 MG, QD
     Route: 048
     Dates: start: 20120529

REACTIONS (10)
  - White blood cell count increased [Recovered/Resolved]
  - Depressive symptom [Recovered/Resolved]
  - Listless [Recovered/Resolved]
  - Erythema multiforme [Recovered/Resolved]
  - Drug reaction with eosinophilia and systemic symptoms [Recovered/Resolved]
  - Erythema [Recovered/Resolved]
  - Xeroderma [Recovered/Resolved]
  - Erythema [Recovered/Resolved]
  - Xeroderma [Recovered/Resolved]
  - Diarrhoea [Recovered/Resolved]
